FAERS Safety Report 18604119 (Version 1)
Quarter: 2020Q4

REPORT INFORMATION
  Report Type: Spontaneous
  Country: US (occurrence: US)
  Receive Date: 20201211
  Receipt Date: 20201211
  Transmission Date: 20210114
  Serious: No
  Sender: FDA-Public Use
  Company Number: None

PATIENT
  Age: 3 Year
  Sex: Male
  Weight: 16.2 kg

DRUGS (1)
  1. TAMIFLU [Suspect]
     Active Substance: OSELTAMIVIR PHOSPHATE
     Indication: INFLUENZA VIRUS TEST POSITIVE
     Dates: start: 20200108, end: 20200108

REACTIONS (2)
  - Hallucination [None]
  - Mania [None]

NARRATIVE: CASE EVENT DATE: 20200108
